FAERS Safety Report 8414004-5 (Version None)
Quarter: 2012Q2

REPORT INFORMATION
  Report Type: 
  Country: None (occurrence: None)
  Receive Date: 20120605
  Receipt Date: 20120528
  Transmission Date: 20120825
  Serious: Yes (Life-Threatening, Other)
  Sender: FDA-Public Use
  Company Number: IT-TEVA-340741USA

PATIENT
  Age: 70 Year
  Sex: Female

DRUGS (2)
  1. RITUXIMAB [Suspect]
  2. TREANDA [Suspect]
     Route: 042

REACTIONS (6)
  - LUNG INFECTION [None]
  - ANAEMIA [None]
  - HEPATITIS CHOLESTATIC [None]
  - STEVENS-JOHNSON SYNDROME [None]
  - FEBRILE NEUTROPENIA [None]
  - FATIGUE [None]
